FAERS Safety Report 11992378 (Version 1)
Quarter: 2016Q1

REPORT INFORMATION
  Report Type: Spontaneous
  Country: US (occurrence: None)
  Receive Date: 20160202
  Receipt Date: 20160202
  Transmission Date: 20160526
  Serious: No
  Sender: FDA-Public Use
  Company Number: None

PATIENT
  Age: 62 Year
  Sex: Female

DRUGS (3)
  1. GLIMIPERIDE [Suspect]
     Active Substance: GLIMEPIRIDE
  2. GLIMIPERIDE [Concomitant]
     Active Substance: GLIMEPIRIDE
  3. TOUJEO [Concomitant]
     Active Substance: INSULIN GLARGINE

REACTIONS (4)
  - Unevaluable event [None]
  - Joint injury [None]
  - Fall [None]
  - Arthritis [None]
